FAERS Safety Report 6361548-6 (Version None)
Quarter: 2009Q3

REPORT INFORMATION
  Report Type: 
  Country: None (occurrence: None)
  Receive Date: 20090915
  Receipt Date: 20090915
  Transmission Date: 20100115
  Serious: Yes (Other)
  Sender: FDA-Public Use
  Company Number: None

PATIENT
  Sex: Female
  Weight: 89 kg

DRUGS (1)
  1. ORENCIA [Suspect]
     Indication: RHEUMATOID ARTHRITIS
     Dosage: 1000MG ONCE IV
     Route: 042
     Dates: start: 20090909, end: 20090909

REACTIONS (2)
  - BLOOD PRESSURE INCREASED [None]
  - DIPLOPIA [None]
